FAERS Safety Report 10078442 (Version 3)
Quarter: 2014Q2

REPORT INFORMATION
  Report Type: Spontaneous
  Country: US (occurrence: None)
  Receive Date: 20140404
  Receipt Date: 20140516
  Transmission Date: 20141212
  Serious: Yes (Hospitalization, Other)
  Sender: FDA-Public Use
  Company Number: 2014P1002609

PATIENT
  Age: 46 Year
  Sex: Female
  Weight: 99.79 kg

DRUGS (4)
  1. INFUMORPH [Suspect]
     Indication: PAIN
     Route: 037
     Dates: start: 20130617
  2. INFUMORPH [Suspect]
     Indication: PAIN
     Route: 037
     Dates: start: 20130617
  3. MORPHINE SULFATE [Concomitant]
  4. IMMEDIATE RELEASE MUCUS RELIEF [Concomitant]

REACTIONS (4)
  - Device dislocation [None]
  - Device kink [None]
  - Drug effect incomplete [None]
  - Device malfunction [None]
